FAERS Safety Report 8874791 (Version 1)
Quarter: 2012Q4

REPORT INFORMATION
  Report Type: 
  Country: US (occurrence: US)
  Receive Date: 20121026
  Receipt Date: 20121026
  Transmission Date: 20130627
  Serious: No
  Sender: FDA-Public Use
  Company Number: US-AMGEN-USASP2012042299

PATIENT
  Age: 6 Year
  Sex: Male

DRUGS (1)
  1. ENBREL [Suspect]
     Indication: JUVENILE ARTHRITIS
     Dosage: 25 mg/0.5 ml, qwk
     Route: 058
     Dates: start: 20120314

REACTIONS (1)
  - Nasopharyngitis [Unknown]
